FAERS Safety Report 23447865 (Version 4)
Quarter: 2024Q4

REPORT INFORMATION
  Report Type: Spontaneous
  Country: US (occurrence: US)
  Receive Date: 20240126
  Receipt Date: 20241004
  Transmission Date: 20250115
  Serious: No
  Sender: EISAI
  Company Number: US-Eisai-EC-2024-156823

PATIENT
  Age: 72 Year
  Sex: Male

DRUGS (3)
  1. LEQEMBI [Suspect]
     Active Substance: LECANEMAB-IRMB
     Indication: Dementia Alzheimer^s type
     Dosage: DOSE UNKNOWN
     Route: 042
     Dates: start: 20231215
  2. DONEPEZIL [Concomitant]
     Active Substance: DONEPEZIL
  3. LISINOPRIL [Concomitant]
     Active Substance: LISINOPRIL

REACTIONS (3)
  - Chills [Recovered/Resolved]
  - Diarrhoea [Not Recovered/Not Resolved]
  - Abdominal discomfort [Recovering/Resolving]

NARRATIVE: CASE EVENT DATE: 20231215
